FAERS Safety Report 6298476-0 (Version None)
Quarter: 2009Q3

REPORT INFORMATION
  Report Type: 
  Country: None (occurrence: None)
  Receive Date: 20090805
  Receipt Date: 20090721
  Transmission Date: 20100115
  Serious: Yes (Hospitalization)
  Sender: FDA-Public Use
  Company Number: IT-GENENTECH-288052

PATIENT
  Sex: Female

DRUGS (3)
  1. RITUXIMAB [Suspect]
     Indication: WALDENSTROM'S MACROGLOBULINAEMIA
     Dosage: 570 MG, UNK
     Route: 042
     Dates: start: 20080708, end: 20080708
  2. FLUDARABINE PHOSPHATE [Suspect]
     Indication: WALDENSTROM'S MACROGLOBULINAEMIA
     Dosage: 38 MG, UNK
     Route: 042
     Dates: start: 20080709, end: 20080711
  3. CYCLOPHOSPHAMIDE [Suspect]
     Indication: WALDENSTROM'S MACROGLOBULINAEMIA
     Dosage: 380 MG, UNK
     Route: 042
     Dates: start: 20080709, end: 20080711

REACTIONS (3)
  - PLEURAL EFFUSION [None]
  - RESPIRATORY DISTRESS [None]
  - SEPSIS [None]
